FAERS Safety Report 22258006 (Version 1)
Quarter: 2023Q2

REPORT INFORMATION
  Report Type: Spontaneous
  Country: GB (occurrence: GB)
  Receive Date: 20230427
  Receipt Date: 20230427
  Transmission Date: 20230722
  Serious: Yes (Hospitalization, Other)
  Sender: FDA-Public Use
  Company Number: None

PATIENT
  Age: 79 Year
  Sex: Female

DRUGS (15)
  1. REMDESIVIR [Suspect]
     Active Substance: REMDESIVIR
     Indication: Coronavirus infection
     Dosage: 200 MG
     Route: 065
     Dates: start: 20230414, end: 20230414
  2. REMDESIVIR [Suspect]
     Active Substance: REMDESIVIR
     Dosage: 100 MG
     Route: 065
     Dates: start: 20230415, end: 20230416
  3. CALCIUM CARBONATE\CHOLECALCIFEROL [Concomitant]
     Active Substance: CALCIUM CARBONATE\CHOLECALCIFEROL
  4. BUMETANIDE [Concomitant]
     Active Substance: BUMETANIDE
  5. CARBOMER [Concomitant]
     Active Substance: CARBOMER
  6. CARVEDILOL [Concomitant]
     Active Substance: CARVEDILOL
  7. EPILIM [Concomitant]
     Active Substance: VALPROATE SODIUM
  8. LAMOTRIGINE [Concomitant]
     Active Substance: LAMOTRIGINE
  9. LEVOFLOXACIN [Concomitant]
     Active Substance: LEVOFLOXACIN
  10. POLYETHYLENE GLYCOLS [Concomitant]
     Active Substance: POLYETHYLENE GLYCOLS
  11. OMEPRAZOLE [Concomitant]
     Active Substance: OMEPRAZOLE
  12. OXYCODONE [Concomitant]
     Active Substance: OXYCODONE
  13. ACETAMINOPHEN [Concomitant]
     Active Substance: ACETAMINOPHEN
  14. PREDNISOLONE [Concomitant]
     Active Substance: PREDNISOLONE
  15. SERTRALINE [Concomitant]
     Active Substance: SERTRALINE HYDROCHLORIDE

REACTIONS (1)
  - Bradycardia [Recovered/Resolved]

NARRATIVE: CASE EVENT DATE: 20230415
